FAERS Safety Report 24774913 (Version 1)
Quarter: 2024Q4

REPORT INFORMATION
  Report Type: Spontaneous
  Country: CN (occurrence: CN)
  Receive Date: 20241226
  Receipt Date: 20241226
  Transmission Date: 20250114
  Serious: Yes (Hospitalization)
  Sender: GALDERMA
  Company Number: CN-GALDERMA-CN2024018464

PATIENT

DRUGS (1)
  1. BENZOYL PEROXIDE [Suspect]
     Active Substance: BENZOYL PEROXIDE
     Indication: Acne
     Dosage: 1 DOSAGE FORM, 1G, ONCE DAILY
     Route: 061
     Dates: start: 20241210, end: 20241212

REACTIONS (6)
  - Swelling face [Unknown]
  - Swelling of eyelid [Unknown]
  - Oedema peripheral [Recovering/Resolving]
  - Papule [Recovering/Resolving]
  - Face oedema [Recovering/Resolving]
  - Erythema [Recovering/Resolving]

NARRATIVE: CASE EVENT DATE: 20241211
